FAERS Safety Report 6269532-8 (Version None)
Quarter: 2009Q3

REPORT INFORMATION
  Report Type: 
  Country: None (occurrence: None)
  Receive Date: 20090715
  Receipt Date: 20090428
  Transmission Date: 20100115
  Serious: No
  Sender: FDA-Public Use
  Company Number: US-TYCO HEALTHCARE/MALLINCKRODT-T200900954

PATIENT
  Sex: Female

DRUGS (10)
  1. OXYCODONE [Suspect]
     Indication: POST LAMINECTOMY SYNDROME
     Dosage: 5 MG, 3 TABLETS EVERY 4 - 6 HOURS
     Route: 048
     Dates: start: 20000101
  2. NICOTINE [Suspect]
     Indication: SMOKING CESSATION THERAPY
     Dosage: 21 MG, SINGLE
     Route: 062
     Dates: start: 20090401, end: 20090401
  3. NICOTINE [Suspect]
     Dosage: 21 MG, SINGLE
     Route: 062
     Dates: start: 20090408, end: 20090408
  4. GABAPENTIN [Suspect]
     Indication: POST LAMINECTOMY SYNDROME
     Dosage: 600 MG,1 TABLET  TID
     Route: 048
     Dates: start: 20000101
  5. AMITRIPTYLINE [Suspect]
     Indication: POST LAMINECTOMY SYNDROME
     Dosage: 50 MG,1 TABLET  TDAILY
     Route: 048
     Dates: start: 20000101
  6. AMBIEN CR [Suspect]
     Indication: POST LAMINECTOMY SYNDROME
     Dosage: 12.5 MG, PRN
     Route: 048
     Dates: start: 20000101
  7. DEPO-ESTRADIOL [Suspect]
     Indication: POST LAMINECTOMY SYNDROME
     Dosage: 1 INJECTION, EVERY 3 WEEKS
     Route: 030
     Dates: start: 20000101
  8. VISTARIL [Suspect]
     Indication: POST LAMINECTOMY SYNDROME
     Dosage: 25 MG, PRN
     Route: 048
     Dates: start: 20000101
  9. OXYCONTIN [Suspect]
     Indication: POST LAMINECTOMY SYNDROME
     Dosage: 60 MG (3 TABLETS) BID
     Route: 048
     Dates: start: 20000101
  10. OXYCONTIN [Suspect]
     Dosage: 80 MG (1 TABLET), BID
     Route: 048
     Dates: start: 20000101

REACTIONS (2)
  - DRUG INTERACTION [None]
  - VOMITING [None]
